FAERS Safety Report 8075360-3 (Version None)
Quarter: 2012Q1

REPORT INFORMATION
  Report Type: 
  Country: None (occurrence: None)
  Receive Date: 20120127
  Receipt Date: 20120119
  Transmission Date: 20120608
  Serious: Yes (Other)
  Sender: FDA-Public Use
  Company Number: US-BAYER-2012-008056

PATIENT
  Age: 33 Year
  Sex: Female
  Weight: 154.92 kg

DRUGS (14)
  1. VICODIN HP [Concomitant]
     Indication: PAIN
     Dosage: UNK UNK, PRN
  2. YAZ [Suspect]
     Indication: DYSMENORRHOEA
     Dosage: UNK
     Dates: start: 20090101
  3. ANTIVERT [Concomitant]
     Indication: VERTIGO POSITIONAL
  4. ACETAMINOPHEN [Concomitant]
     Indication: ABDOMINAL PAIN
  5. NAPROSYN [Concomitant]
     Dosage: 500 MG, BID
  6. EFFEXOR XR [Concomitant]
     Dosage: 150 MG, BID
  7. ZONEGRAN [Concomitant]
     Dosage: 500 MG, UNK
  8. MAXALT [Concomitant]
     Dosage: 10 MG, UNK
  9. LEVOTHROID [Concomitant]
     Dosage: 0.150 MG, QD
  10. PHENERGAN [Concomitant]
     Dosage: 25 MG, UNK
  11. PSEUDOVENT [Concomitant]
     Indication: NASAL CONGESTION
  12. NASACORT AQ [Concomitant]
     Dosage: 2 PUFF(S), QD
  13. KEPPRA [Concomitant]
     Dosage: 200 MG, BID
  14. PSEUDOVENT [Concomitant]
     Indication: COUGH

REACTIONS (4)
  - OEDEMA PERIPHERAL [None]
  - PAIN IN EXTREMITY [None]
  - DEEP VEIN THROMBOSIS [None]
  - MUSCLE SPASMS [None]
